FAERS Safety Report 8311839-4 (Version None)
Quarter: 2012Q2

REPORT INFORMATION
  Report Type: 
  Country: None (occurrence: None)
  Receive Date: 20120425
  Receipt Date: 20120416
  Transmission Date: 20120825
  Serious: Yes (Disabling)
  Sender: FDA-Public Use
  Company Number: US-PFIZER INC-2012092650

PATIENT
  Sex: Female

DRUGS (1)
  1. EFFEXOR XR [Suspect]
     Dosage: UNK
     Dates: start: 20070101

REACTIONS (4)
  - PANIC DISORDER [None]
  - SKELETAL INJURY [None]
  - WRIST FRACTURE [None]
  - NERVOUSNESS [None]
